FAERS Safety Report 8818070 (Version 1)
Quarter: 2012Q4

REPORT INFORMATION
  Report Type: 
  Country: US (occurrence: US)
  Receive Date: 20121001
  Receipt Date: 20121001
  Transmission Date: 20130627
  Serious: No
  Sender: FDA-Public Use
  Company Number: US-009507513-1208USA008405

PATIENT
  Sex: Male

DRUGS (2)
  1. SINGULAIR [Suspect]
     Dosage: 10 mg, UNK
     Route: 048
  2. ASPIRIN [Concomitant]

REACTIONS (1)
  - Bleeding time abnormal [Not Recovered/Not Resolved]
